FAERS Safety Report 14502391 (Version 1)
Quarter: 2018Q1

REPORT INFORMATION
  Report Type: Spontaneous
  Country: AR (occurrence: AR)
  Receive Date: 20180208
  Receipt Date: 20180208
  Transmission Date: 20180509
  Serious: Yes (Other)
  Sender: FDA-Public Use
  Company Number: AR-AMGEN-ARGSP2018016335

PATIENT
  Age: 47 Year
  Sex: Male

DRUGS (1)
  1. ENBREL [Suspect]
     Active Substance: ETANERCEPT
     Indication: PSORIASIS
     Dosage: UNK
     Route: 065
     Dates: start: 20170901

REACTIONS (4)
  - Cough [Recovered/Resolved]
  - Pulmonary mass [Unknown]
  - Pyrexia [Recovered/Resolved]
  - Latent tuberculosis [Unknown]

NARRATIVE: CASE EVENT DATE: 201710
